FAERS Safety Report 18183406 (Version 3)
Quarter: 2021Q4

REPORT INFORMATION
  Report Type: Report from Study
  Country: CA (occurrence: CA)
  Receive Date: 20200822
  Receipt Date: 20211126
  Transmission Date: 20220303
  Serious: Yes (Other)
  Sender: FDA-Public Use
  Company Number: NVSC2019CA035877

PATIENT
  Sex: Male

DRUGS (12)
  1. ILARIS [Suspect]
     Active Substance: CANAKINUMAB
     Indication: Still^s disease
     Dosage: 280 MG, EVERY 10 WEEKS
     Route: 058
     Dates: start: 20191008
  2. ILARIS [Suspect]
     Active Substance: CANAKINUMAB
     Dosage: 280 OT, Q4W
     Route: 058
     Dates: start: 20200130
  3. ILARIS [Suspect]
     Active Substance: CANAKINUMAB
     Dosage: 280 OT, Q4W
     Route: 058
     Dates: start: 20200227
  4. ILARIS [Suspect]
     Active Substance: CANAKINUMAB
     Dosage: 280 MG, Q4W
     Route: 058
     Dates: start: 20200717
  5. ILARIS [Suspect]
     Active Substance: CANAKINUMAB
     Dosage: 280 MG EVERY 6 WEEK
     Route: 058
     Dates: start: 20200814
  6. ILARIS [Suspect]
     Active Substance: CANAKINUMAB
     Dosage: 280 EVERY 12 WEEKS
     Route: 065
     Dates: start: 20210628
  7. ILARIS [Suspect]
     Active Substance: CANAKINUMAB
     Dosage: UNK
     Route: 065
     Dates: start: 20211027
  8. PREDNISONE [Concomitant]
     Active Substance: PREDNISONE
     Indication: Product used for unknown indication
     Dosage: UNK
     Route: 065
  9. METHOTREXATE [Concomitant]
     Active Substance: METHOTREXATE
     Indication: Product used for unknown indication
     Dosage: UNK
     Route: 065
  10. ACTEMRA [Concomitant]
     Active Substance: TOCILIZUMAB
     Indication: Product used for unknown indication
     Dosage: UNK
     Route: 065
  11. KINERET [Concomitant]
     Active Substance: ANAKINRA
     Indication: Product used for unknown indication
     Dosage: UNK
     Route: 065
  12. CYCLOSPORINE [Concomitant]
     Active Substance: CYCLOSPORINE
     Indication: Product used for unknown indication
     Dosage: 60 MG, BID
     Route: 065
     Dates: start: 201908

REACTIONS (8)
  - Viral infection [Recovered/Resolved]
  - Hyperpyrexia [Recovered/Resolved]
  - Illness [Recovered/Resolved]
  - Blood pressure decreased [Unknown]
  - Aspartate aminotransferase increased [Unknown]
  - Blood lactic acid increased [Unknown]
  - Acne [Unknown]
  - Inappropriate schedule of product administration [Unknown]

NARRATIVE: CASE EVENT DATE: 20190101
